FAERS Safety Report 15376269 (Version 4)
Quarter: 2018Q4

REPORT INFORMATION
  Report Type: Spontaneous
  Country: RO (occurrence: RO)
  Receive Date: 20180912
  Receipt Date: 20181002
  Transmission Date: 20190204
  Serious: Yes (Death, Hospitalization)
  Sender: FDA-Public Use
  Company Number: RO-MYLANLABS-2018M1067016

PATIENT
  Age: 55 Year
  Sex: Female
  Weight: 80 kg

DRUGS (11)
  1. AMPICILLIN [Suspect]
     Active Substance: AMPICILLIN
     Indication: LISTERIOSIS
     Dosage: 2000 MG, 2 DAY
  2. NORADRENALINE                      /00127501/ [Concomitant]
     Active Substance: NOREPINEPHRINE
     Indication: PRODUCT USED FOR UNKNOWN INDICATION
     Dosage: UNK
  3. ENOXAPARINE SODIQUE [Concomitant]
     Active Substance: ENOXAPARIN SODIUM
     Indication: PRODUCT USED FOR UNKNOWN INDICATION
     Dosage: UNK
  4. TRAMADOL. [Concomitant]
     Active Substance: TRAMADOL
     Indication: PRODUCT USED FOR UNKNOWN INDICATION
     Dosage: UNK
  5. DEXAMETHASONE. [Suspect]
     Active Substance: DEXAMETHASONE
     Indication: PLASMA CELL MYELOMA
     Dosage: UNK, THIRD TREATMENT SESSION
     Route: 065
  6. AMPICILLIN [Suspect]
     Active Substance: AMPICILLIN
     Indication: SEPSIS
  7. VELCADE [Suspect]
     Active Substance: BORTEZOMIB
     Indication: PLASMA CELL MYELOMA
     Dosage: THIRD TREATMENT SESSION
     Route: 005
  8. ERTAPENEM. [Suspect]
     Active Substance: ERTAPENEM SODIUM
     Indication: ESCHERICHIA SEPSIS
     Dosage: 1 G, QD
     Route: 065
  9. LIDOCAINE. [Concomitant]
     Active Substance: LIDOCAINE
     Indication: PRODUCT USED FOR UNKNOWN INDICATION
     Dosage: UNK
  10. BORTEZOMIB. [Suspect]
     Active Substance: BORTEZOMIB
     Indication: PLASMA CELL MYELOMA
     Dosage: UNK
     Route: 065
  11. METOPROLOL. [Concomitant]
     Active Substance: METOPROLOL
     Indication: PRODUCT USED FOR UNKNOWN INDICATION
     Dosage: UNK

REACTIONS (28)
  - Skin lesion [Fatal]
  - Inflammation [Fatal]
  - Petechiae [Fatal]
  - Thrombocytopenia [Fatal]
  - Rash erythematous [Fatal]
  - Dysphagia [Fatal]
  - Rash pustular [Fatal]
  - Anaemia [Fatal]
  - Drug ineffective [Fatal]
  - C-reactive protein increased [Fatal]
  - Oedema peripheral [Fatal]
  - Productive cough [Fatal]
  - Ecchymosis [Fatal]
  - Neutrophilia [Fatal]
  - Pyrexia [Fatal]
  - Purpura [Fatal]
  - Stomatitis [Fatal]
  - Listeriosis [Fatal]
  - Haemodynamic instability [Fatal]
  - Hypotension [Fatal]
  - Coma [Fatal]
  - Vertigo [Fatal]
  - Immunosuppression [Fatal]
  - Chills [Fatal]
  - Escherichia sepsis [Fatal]
  - PCO2 decreased [Fatal]
  - Listeria sepsis [Fatal]
  - White blood cell count increased [Fatal]
